FAERS Safety Report 14211188 (Version 1)
Quarter: 2017Q4

REPORT INFORMATION
  Report Type: Spontaneous
  Country: US (occurrence: None)
  Receive Date: 20171121
  Receipt Date: 20171121
  Transmission Date: 20180321
  Serious: Yes (Hospitalization, Other)
  Sender: FDA-Public Use
  Company Number: None

PATIENT
  Age: 53 Year
  Sex: Female
  Weight: 65.77 kg

DRUGS (5)
  1. VERAPAMIL [Concomitant]
     Active Substance: VERAPAMIL HYDROCHLORIDE
  2. BOTOX [Suspect]
     Active Substance: ONABOTULINUMTOXINA
     Indication: MIGRAINE
     Dosage: EVERY 3 MONTHS
     Dates: start: 20171021
  3. NADOLOL. [Concomitant]
     Active Substance: NADOLOL
  4. AMITRIPTYLIN [Concomitant]
     Active Substance: AMITRIPTYLINE
  5. CARVIDOL [Concomitant]

REACTIONS (7)
  - Vision blurred [None]
  - Gait disturbance [None]
  - Diplopia [None]
  - Headache [None]
  - Weight abnormal [None]
  - Neck pain [None]
  - Eyelid ptosis [None]

NARRATIVE: CASE EVENT DATE: 20171026
